FAERS Safety Report 20904602 (Version 1)
Quarter: 2022Q2

REPORT INFORMATION
  Report Type: Spontaneous
  Country: TR (occurrence: TR)
  Receive Date: 20220602
  Receipt Date: 20220602
  Transmission Date: 20220721
  Serious: Yes (Other)
  Sender: FDA-Public Use
  Company Number: TR-ASTELLAS-2022US019802

PATIENT
  Age: 85 Year
  Sex: Male

DRUGS (2)
  1. XTANDI [Suspect]
     Active Substance: ENZALUTAMIDE
     Indication: Hormone-refractory prostate cancer
     Route: 065
     Dates: start: 201903, end: 202106
  2. XTANDI [Suspect]
     Active Substance: ENZALUTAMIDE
     Route: 065
     Dates: start: 202106

REACTIONS (11)
  - Acute kidney injury [Unknown]
  - Malignant neoplasm progression [Unknown]
  - Hip fracture [Unknown]
  - Hydronephrosis [Unknown]
  - Abdominal pain upper [Unknown]
  - Blood creatinine increased [Unknown]
  - Decreased appetite [Unknown]
  - Weight decreased [Unknown]
  - Hypertension [Unknown]
  - Fatigue [Unknown]
  - Asthenia [Unknown]
